FAERS Safety Report 9149426 (Version 2)
Quarter: 2013Q2

REPORT INFORMATION
  Report Type: Report from Study
  Country: CA (occurrence: CA)
  Receive Date: 20130308
  Receipt Date: 20130620
  Transmission Date: 20140414
  Serious: Yes (Hospitalization)
  Sender: FDA-Public Use
  Company Number: CA-JNJFOC-20130300198

PATIENT
  Age: 59 Year
  Sex: Female
  Weight: 76.3 kg

DRUGS (6)
  1. REMICADE [Suspect]
     Indication: CROHN^S DISEASE
     Route: 042
     Dates: start: 20120508, end: 20130127
  2. MURO 128 [Concomitant]
     Route: 065
  3. TYLENOL 3 [Concomitant]
     Route: 065
  4. IMODIUM [Concomitant]
     Route: 065
  5. SYNTHROID [Concomitant]
     Route: 065
  6. AN UNKNOWN MEDICATION [Concomitant]
     Route: 065

REACTIONS (3)
  - Intestinal operation [Unknown]
  - Post procedural infection [Unknown]
  - Abscess [Unknown]
